FAERS Safety Report 26024526 (Version 1)
Quarter: 2025Q4

REPORT INFORMATION
  Report Type: Spontaneous
  Country: US (occurrence: US)
  Receive Date: 20251111
  Receipt Date: 20251111
  Transmission Date: 20260117
  Serious: No
  Sender: CSL BEHRING
  Company Number: US-BEH-2025223330

PATIENT
  Age: 20 Year
  Sex: Male

DRUGS (6)
  1. HIZENTRA [Suspect]
     Active Substance: HUMAN IMMUNOGLOBULIN G
     Indication: Autonomic neuropathy
     Dosage: 2 G, BIW
     Route: 058
     Dates: start: 202101
  2. HIZENTRA [Suspect]
     Active Substance: HUMAN IMMUNOGLOBULIN G
     Dosage: 4 G, BIW
     Route: 058
     Dates: start: 202101
  3. HIZENTRA [Suspect]
     Active Substance: HUMAN IMMUNOGLOBULIN G
     Dosage: 10 G, BIW
     Route: 058
     Dates: start: 202101
  4. HIZENTRA [Suspect]
     Active Substance: HUMAN IMMUNOGLOBULIN G
     Dosage: UNK
     Route: 058
     Dates: start: 202509
  5. PRIVIGEN [Suspect]
     Active Substance: HUMAN IMMUNOGLOBULIN G
     Dosage: UNK
     Route: 042
  6. EPINEPHRINE [Concomitant]
     Active Substance: EPINEPHRINE
     Dosage: UNK

REACTIONS (7)
  - Swelling face [Not Recovered/Not Resolved]
  - Fatigue [Unknown]
  - Urticaria [Unknown]
  - Swelling face [Unknown]
  - Eye disorder [Unknown]
  - Therapy change [Unknown]
  - Off label use [Unknown]

NARRATIVE: CASE EVENT DATE: 20210101
